FAERS Safety Report 19300741 (Version 1)
Quarter: 2021Q2

REPORT INFORMATION
  Report Type: Spontaneous
  Country: US (occurrence: US)
  Receive Date: 20210525
  Receipt Date: 20210525
  Transmission Date: 20210717
  Serious: No
  Sender: FDA-Public Use
  Company Number: None

PATIENT
  Age: 57 Year
  Sex: Male
  Weight: 84 kg

DRUGS (1)
  1. EMPAGLIFLOZIN [Suspect]
     Active Substance: EMPAGLIFLOZIN
     Route: 048
     Dates: start: 20200305, end: 20210420

REACTIONS (2)
  - Perineal abscess [None]
  - Diabetic ketoacidosis [None]

NARRATIVE: CASE EVENT DATE: 20210420
